FAERS Safety Report 4302071-X (Version None)
Quarter: 2004Q1

REPORT INFORMATION
  Report Type: 
  Country: None (occurrence: None)
  Receive Date: 20040220
  Receipt Date: 20040206
  Transmission Date: 20041129
  Serious: Yes (Hospitalization, Disabling, Other)
  Sender: FDA-Public Use
  Company Number: 9813545

PATIENT
  Age: 48 Year
  Sex: Female

DRUGS (3)
  1. SERTRALINE HCL [Suspect]
     Indication: DEPRESSION
     Dosage: 100 MG (DAILY), ORAL
     Route: 048
     Dates: start: 19971124, end: 19980429
  2. PHENOBARBITAL TAB [Concomitant]
  3. NUVELLE (LEVONORGESTREL, ESTRADIOL VALERATE) [Concomitant]

REACTIONS (11)
  - BLISTER INFECTED [None]
  - ERYTHEMA [None]
  - EXTRAVASATION BLOOD [None]
  - HERPES ZOSTER [None]
  - HYPERSENSITIVITY [None]
  - IMPAIRED HEALING [None]
  - SCLERODERMA [None]
  - SKIN GRAFT [None]
  - SKIN NECROSIS [None]
  - SPIDER NAEVUS [None]
  - VASCULITIS [None]
